FAERS Safety Report 18028629 (Version 1)
Quarter: 2020Q3

REPORT INFORMATION
  Report Type: Spontaneous
  Country: PL (occurrence: PL)
  Receive Date: 20200716
  Receipt Date: 20200716
  Transmission Date: 20201103
  Serious: Yes (Other)
  Sender: FDA-Public Use
  Company Number: PL-AUROBINDO-AUR-APL-2020-029746

PATIENT
  Age: 22 Year
  Sex: Male

DRUGS (2)
  1. LAMOTRIGINE. [Suspect]
     Active Substance: LAMOTRIGINE
     Indication: PRODUCT USED FOR UNKNOWN INDICATION
     Dosage: UNK
     Route: 065
  2. VENLAFAXINE [Suspect]
     Active Substance: VENLAFAXINE HYDROCHLORIDE
     Indication: DEPRESSION
     Dosage: 225 MILLIGRAM, DAILY
     Route: 065

REACTIONS (14)
  - Bipolar disorder [Recovered/Resolved]
  - Economic problem [Recovered/Resolved]
  - Aggression [Recovered/Resolved]
  - Drug ineffective [Unknown]
  - Substance use [Recovered/Resolved]
  - Alcohol abuse [Recovered/Resolved]
  - Therapeutic product effect incomplete [Recovered/Resolved]
  - Thinking abnormal [Unknown]
  - Depression [Recovered/Resolved]
  - Irritability [Recovered/Resolved]
  - Fear [Recovered/Resolved]
  - Propulsive gait [Unknown]
  - Mental disorder [Unknown]
  - Logorrhoea [Recovered/Resolved]
